FAERS Safety Report 8983028 (Version 2)
Quarter: 2013Q2

REPORT INFORMATION
  Report Type: Spontaneous
  Country: PT (occurrence: PT)
  Receive Date: 20121224
  Receipt Date: 20130426
  Transmission Date: 20140414
  Serious: Yes (Hospitalization)
  Sender: FDA-Public Use
  Company Number: PHHY2012PT118234

PATIENT
  Age: 14 Year
  Sex: Male

DRUGS (6)
  1. TACROLIMUS [Suspect]
  2. MYCOPHENOLATE MOFETIL [Suspect]
  3. PREDNISONE [Suspect]
  4. ITRACONAZOL [Concomitant]
     Indication: OPPORTUNISTIC INFECTION
  5. MYCOSTATIN [Concomitant]
     Indication: OPPORTUNISTIC INFECTION
  6. CEFUROXIME [Concomitant]
     Indication: OPPORTUNISTIC INFECTION

REACTIONS (13)
  - Posterior reversible encephalopathy syndrome [Recovered/Resolved]
  - Cognitive disorder [Recovered/Resolved]
  - Convulsion [Recovered/Resolved]
  - Somnolence [Recovered/Resolved]
  - Lethargy [Recovered/Resolved]
  - Depressed level of consciousness [Recovered/Resolved]
  - Extensor plantar response [Recovered/Resolved]
  - Partial seizures [Recovered/Resolved]
  - Clonus [Recovered/Resolved]
  - Eye movement disorder [Recovered/Resolved]
  - Grand mal convulsion [Recovered/Resolved]
  - Vasogenic cerebral oedema [Recovered/Resolved]
  - Hallucination, visual [Recovered/Resolved]
